FAERS Safety Report 13137566 (Version 1)
Quarter: 2017Q1

REPORT INFORMATION
  Report Type: Spontaneous
  Country: US (occurrence: US)
  Receive Date: 20170122
  Receipt Date: 20170122
  Transmission Date: 20170428
  Serious: Yes (Other)
  Sender: FDA-Public Use
  Company Number: None

PATIENT
  Age: 44 Year
  Sex: Female

DRUGS (1)
  1. AMPYRA [Suspect]
     Active Substance: DALFAMPRIDINE
     Indication: MULTIPLE SCLEROSIS
     Route: 048
     Dates: start: 20161227

REACTIONS (4)
  - B-lymphocyte count decreased [None]
  - T-lymphocyte count increased [None]
  - Laboratory test abnormal [None]
  - CD4 lymphocytes increased [None]

NARRATIVE: CASE EVENT DATE: 20170110
